FAERS Safety Report 12558350 (Version 1)
Quarter: 2016Q3

REPORT INFORMATION
  Report Type: Spontaneous
  Country: US (occurrence: US)
  Receive Date: 20160714
  Receipt Date: 20160714
  Transmission Date: 20161109
  Serious: No
  Sender: FDA-Public Use
  Company Number: US-GALDERMA-US16003204

PATIENT
  Age: 47 Year
  Sex: Female

DRUGS (2)
  1. SOOLANTRA [Suspect]
     Active Substance: IVERMECTIN
     Indication: ROSACEA
     Dosage: 1%
     Route: 061
     Dates: start: 201603
  2. SOOLANTRA [Suspect]
     Active Substance: IVERMECTIN
     Indication: ACNE

REACTIONS (6)
  - Application site dryness [Recovering/Resolving]
  - Pain of skin [Recovered/Resolved]
  - Product use issue [Recovered/Resolved]
  - Dermal cyst [Recovered/Resolved]
  - Skin exfoliation [Unknown]
  - Condition aggravated [Recovered/Resolved]

NARRATIVE: CASE EVENT DATE: 2016
